FAERS Safety Report 5064670-X (Version None)
Quarter: 2006Q3

REPORT INFORMATION
  Report Type: 
  Country: None (occurrence: None)
  Receive Date: 20060728
  Receipt Date: 20060518
  Transmission Date: 20061208
  Serious: Yes (Hospitalization)
  Sender: FDA-Public Use
  Company Number: US-GLAXOSMITHKLINE-A0606197A

PATIENT
  Age: 58 Year
  Sex: Female
  Weight: 64.1 kg

DRUGS (12)
  1. LAMICTAL [Suspect]
     Dosage: 100MG TWICE PER DAY
     Route: 048
  2. PROLIXIN [Concomitant]
  3. COGENTIN [Concomitant]
     Dosage: 1MG AS REQUIRED
  4. ATIVAN [Concomitant]
     Dosage: 1MG THREE TIMES PER DAY
  5. NEURONTIN [Concomitant]
     Dosage: 900MG THREE TIMES PER DAY
  6. CHLORAL HYDRATE [Concomitant]
     Dosage: 2000MG AT NIGHT
  7. PROTONIX [Concomitant]
     Dosage: 40MG PER DAY
  8. INDERAL [Concomitant]
     Dosage: 20MG THREE TIMES PER DAY
  9. COLACE [Concomitant]
  10. SENOKOT [Concomitant]
  11. MULTI-VITAMIN [Concomitant]
  12. ACETAMINOPHEN [Concomitant]

REACTIONS (8)
  - ADVERSE EVENT [None]
  - AGITATION [None]
  - DISCOMFORT [None]
  - EOSINOPHILIA [None]
  - PERSONALITY CHANGE [None]
  - SKIN IRRITATION [None]
  - THINKING ABNORMAL [None]
  - WEIGHT DECREASED [None]
